FAERS Safety Report 10671107 (Version 1)
Quarter: 2014Q4

REPORT INFORMATION
  Report Type: Spontaneous
  Country: US (occurrence: US)
  Receive Date: 20141223
  Receipt Date: 20141223
  Transmission Date: 20150529
  Serious: Yes (Other)
  Sender: FDA-Public Use
  Company Number: US-PFIZER INC-2014350435

PATIENT
  Sex: Female

DRUGS (1)
  1. PRISTIQ EXTENDED RELEASE [Suspect]
     Active Substance: DESVENLAFAXINE SUCCINATE
     Indication: NERVOUS SYSTEM DISORDER
     Dosage: UNK, DAILY
     Dates: start: 2014

REACTIONS (2)
  - Poor quality sleep [Unknown]
  - Cataract [Unknown]

NARRATIVE: CASE EVENT DATE: 2014
